FAERS Safety Report 9270139 (Version 2)
Quarter: 2013Q2

REPORT INFORMATION
  Report Type: Spontaneous
  Country: US (occurrence: US)
  Receive Date: 20130503
  Receipt Date: 20130510
  Transmission Date: 20140414
  Serious: Yes (Other)
  Sender: FDA-Public Use
  Company Number: US-JNJFOC-20130501598

PATIENT
  Age: 54 Year
  Sex: Female
  Weight: 58.1 kg

DRUGS (5)
  1. IBUPROFEN [Suspect]
     Indication: ABDOMINAL PAIN LOWER
     Dosage: STARTED DRUG ON 11/12-APR-2013
     Route: 065
     Dates: start: 201304
  2. IBUPROFEN [Suspect]
     Indication: PAIN IN EXTREMITY
     Dosage: STARTED DRUG ON 11/12-APR-2013
     Route: 065
     Dates: start: 201304
  3. IBUPROFEN [Suspect]
     Indication: HYPOAESTHESIA
     Dosage: STARTED DRUG ON 11/12-APR-2013
     Route: 065
     Dates: start: 201304
  4. IBUPROFEN [Suspect]
     Indication: PARAESTHESIA
     Dosage: STARTED DRUG ON 11/12-APR-2013
     Route: 065
     Dates: start: 201304
  5. DEPO-PROVERA [Suspect]
     Indication: POSTMENOPAUSAL HAEMORRHAGE
     Route: 030
     Dates: start: 20130410

REACTIONS (14)
  - Ocular icterus [Not Recovered/Not Resolved]
  - Weight decreased [Not Recovered/Not Resolved]
  - Skin atrophy [Not Recovered/Not Resolved]
  - Night sweats [Not Recovered/Not Resolved]
  - Dry skin [Not Recovered/Not Resolved]
  - Hypotonia [Not Recovered/Not Resolved]
  - Restlessness [Not Recovered/Not Resolved]
  - Vision blurred [Not Recovered/Not Resolved]
  - Insomnia [Not Recovered/Not Resolved]
  - Drug intolerance [Not Recovered/Not Resolved]
  - Nausea [Not Recovered/Not Resolved]
  - Malaise [Not Recovered/Not Resolved]
  - Asthenia [Not Recovered/Not Resolved]
  - Feeling abnormal [Not Recovered/Not Resolved]
